FAERS Safety Report 9861239 (Version 2)
Quarter: 2014Q2

REPORT INFORMATION
  Report Type: Spontaneous
  Country: IT (occurrence: IT)
  Receive Date: 20140202
  Receipt Date: 20140627
  Transmission Date: 20141212
  Serious: Yes (Life-Threatening, Hospitalization)
  Sender: FDA-Public Use
  Company Number: IT-BRISTOL-MYERS SQUIBB COMPANY-20092771

PATIENT
  Age: 83 Year
  Sex: Female

DRUGS (5)
  1. COUMADIN TABS 5 MG [Suspect]
     Indication: ATRIAL FIBRILLATION
     Dosage: 1 DF: 1 UNIT
     Route: 048
     Dates: start: 20130101, end: 20130630
  2. ALLOPURINOL [Concomitant]
  3. CONGESCOR [Concomitant]
     Dosage: TABS.
  4. QUINAPRIL HCL + HCTZ [Concomitant]
     Dosage: 1 DF:20+12.5 MG TABS
  5. CONTRAMAL [Concomitant]
     Dosage: 1 DF:100 MG/ML DROPS SOLUTION.
     Route: 048

REACTIONS (5)
  - Cerebral haemorrhage [Recovered/Resolved]
  - Confusional state [Recovered/Resolved]
  - Muscular weakness [Recovered/Resolved]
  - Pupils unequal [Recovered/Resolved]
  - Haematoma [Unknown]
